FAERS Safety Report 8326918-5 (Version None)
Quarter: 2012Q2

REPORT INFORMATION
  Report Type: 
  Country: None (occurrence: None)
  Receive Date: 20120501
  Receipt Date: 20120423
  Transmission Date: 20120825
  Serious: Yes (Other)
  Sender: FDA-Public Use
  Company Number: US-ROXANE LABORATORIES, INC.-2012-RO-01114RO

PATIENT
  Age: 11 Year
  Sex: Male

DRUGS (2)
  1. TACROLIMUS [Suspect]
     Indication: IMMUNOSUPPRESSION
  2. MYCOPHENOLATE MOFETIL [Suspect]
     Indication: IMMUNOSUPPRESSION

REACTIONS (6)
  - CYTOMEGALOVIRUS VIRAEMIA [None]
  - BK VIRUS INFECTION [None]
  - LEUKOPENIA [None]
  - POLYOMAVIRUS TEST POSITIVE [None]
  - TUBULOINTERSTITIAL NEPHRITIS [None]
  - POLYOMAVIRUS-ASSOCIATED NEPHROPATHY [None]
